FAERS Safety Report 9893424 (Version 1)
Quarter: 2014Q1

REPORT INFORMATION
  Report Type: Report from Study
  Country: US (occurrence: US)
  Receive Date: 20140213
  Receipt Date: 20140213
  Transmission Date: 20141002
  Serious: Yes (Hospitalization, Other)
  Sender: FDA-Public Use
  Company Number: US-ROCHE-1343072

PATIENT
  Sex: Male
  Weight: 103.97 kg

DRUGS (17)
  1. NUTROPIN AQ [Suspect]
     Indication: HYPOPITUITARISM
     Route: 058
  2. NUTROPIN AQ [Suspect]
     Route: 065
  3. NUTROPIN AQ [Suspect]
     Route: 065
  4. DIOVAN [Concomitant]
  5. DILTIAZEM [Concomitant]
  6. MORPHINE [Concomitant]
  7. OXYCODONE [Concomitant]
  8. CYCLOBENZAPRINE [Concomitant]
  9. CRESTOR [Concomitant]
     Route: 065
  10. LYRICA [Concomitant]
     Route: 065
  11. LYRICA [Concomitant]
     Route: 065
  12. TRAZODONE [Concomitant]
     Dosage: AT BED TIME
     Route: 065
  13. SYNTHYROID [Concomitant]
     Route: 065
  14. TESTOSTERONE [Concomitant]
     Route: 065
  15. TESTOSTERONE [Concomitant]
     Route: 030
  16. CHANTIX [Concomitant]
  17. CIALIS [Concomitant]
     Dosage: A TOTAL OF 10 MG TO 20 MG AS NEEDED.
     Route: 065

REACTIONS (4)
  - Insulin-like growth factor increased [Unknown]
  - Deep vein thrombosis [Unknown]
  - Dizziness [Unknown]
  - Hypotension [Unknown]
